FAERS Safety Report 8912335 (Version 1)
Quarter: 2012Q4

REPORT INFORMATION
  Report Type: 
  Country: IT (occurrence: IT)
  Receive Date: 20121115
  Receipt Date: 20121115
  Transmission Date: 20130627
  Serious: Yes (Other)
  Sender: FDA-Public Use
  Company Number: IT-ELI_LILLY_AND_COMPANY-IT201211004867

PATIENT

DRUGS (3)
  1. GEMCITABINE HYDROCHLORIDE [Suspect]
     Indication: NON-SMALL CELL LUNG CANCER
     Dosage: 1000 mg/m2, day 1 and 8 every 3 weeks for 3 courses
     Route: 042
  2. CISPLATIN [Concomitant]
     Indication: NON-SMALL CELL LUNG CANCER
     Dosage: 60 mg/m2, dai 1 every 3 weeks for 3 courses
  3. DOCETAXEL [Concomitant]
     Indication: NON-SMALL CELL LUNG CANCER
     Dosage: 37.5 mg, day 1 and 8 every 3 weeks for 3 courses

REACTIONS (2)
  - Neurological symptom [Unknown]
  - Neurotoxicity [None]
